FAERS Safety Report 9916604 (Version 1)
Quarter: 2014Q1

REPORT INFORMATION
  Report Type: Spontaneous
  Country: RS (occurrence: RS)
  Receive Date: 20140221
  Receipt Date: 20140221
  Transmission Date: 20141002
  Serious: Yes (Hospitalization)
  Sender: FDA-Public Use
  Company Number: PHHY2014RS017921

PATIENT
  Age: 58 Year
  Sex: Female

DRUGS (3)
  1. METHOTREXATE [Suspect]
     Indication: RHEUMATIC DISORDER
     Dosage: 17.5 MG, QW
     Route: 048
     Dates: start: 2007
  2. ENBREL [Suspect]
     Indication: RHEUMATIC DISORDER
     Dosage: 50 MG, QW
     Route: 058
     Dates: start: 20130922, end: 201311
  3. PRONISON [Concomitant]
     Indication: RHEUMATIC DISORDER
     Dosage: 25 MG, PER DAY
     Route: 048
     Dates: start: 2007

REACTIONS (3)
  - Eyelid oedema [Unknown]
  - Pulmonary fibrosis [Recovering/Resolving]
  - Respiratory disorder [Recovering/Resolving]
